FAERS Safety Report 10458415 (Version 1)
Quarter: 2014Q3

REPORT INFORMATION
  Report Type: Spontaneous
  Country: US (occurrence: None)
  Receive Date: 20140916
  Receipt Date: 20140916
  Transmission Date: 20150326
  Serious: Yes (Disabling)
  Sender: FDA-Public Use
  Company Number: None

PATIENT
  Age: 43 Year
  Sex: Female
  Weight: 98.43 kg

DRUGS (6)
  1. B VITAMINS [Concomitant]
  2. SYNTHROID [Concomitant]
     Active Substance: LEVOTHYROXINE SODIUM
  3. NATURE MADE MULTIVITAMINS [Concomitant]
  4. LITHIUM CARBONATE. [Concomitant]
     Active Substance: LITHIUM CARBONATE
  5. TRILEPTAL [Suspect]
     Active Substance: OXCARBAZEPINE
     Indication: MENTAL DISORDER
     Route: 048
     Dates: start: 2013, end: 2014
  6. GEODON [Concomitant]
     Active Substance: ZIPRASIDONE HYDROCHLORIDE\ZIPRASIDONE MESYLATE

REACTIONS (1)
  - Visual impairment [None]

NARRATIVE: CASE EVENT DATE: 2013
